FAERS Safety Report 18819593 (Version 2)
Quarter: 2021Q1

REPORT INFORMATION
  Report Type: Spontaneous
  Country: GR (occurrence: GR)
  Receive Date: 20210201
  Receipt Date: 20210216
  Transmission Date: 20210419
  Serious: Yes (Death, Hospitalization, Other)
  Sender: FDA-Public Use
  Company Number: GR-PFIZER INC-2021082619

PATIENT
  Sex: Male
  Weight: 120 kg

DRUGS (4)
  1. INLYTA [Suspect]
     Active Substance: AXITINIB
     Dosage: 5 MG, 1X/DAY
     Dates: start: 2020
  2. KEYTRUDA [Suspect]
     Active Substance: PEMBROLIZUMAB
     Indication: RENAL CELL CARCINOMA
     Dosage: 200 MG, EVERY 3 WEEKS
     Dates: start: 201910, end: 202001
  3. KEYTRUDA [Suspect]
     Active Substance: PEMBROLIZUMAB
     Dosage: 200 MG, EVERY 3 WEEKS
     Dates: start: 2020
  4. INLYTA [Suspect]
     Active Substance: AXITINIB
     Indication: RENAL CELL CARCINOMA
     Dosage: 1ST CYCLE
     Dates: start: 201910, end: 202001

REACTIONS (6)
  - Pneumonitis [Fatal]
  - Multiple organ dysfunction syndrome [Fatal]
  - Oxygen saturation decreased [Fatal]
  - Cardiac arrest [Fatal]
  - Myocardiac abscess [Fatal]
  - Bladder cyst [Fatal]

NARRATIVE: CASE EVENT DATE: 2020
